FAERS Safety Report 7477718-X (Version None)
Quarter: 2011Q2

REPORT INFORMATION
  Report Type: 
  Country: None (occurrence: None)
  Receive Date: 20110505
  Receipt Date: 20110420
  Transmission Date: 20111010
  Serious: Yes (Death, Other)
  Sender: FDA-Public Use
  Company Number: 2011NUEUSA00010

PATIENT
  Age: 92 Year
  Sex: Female

DRUGS (1)
  1. NUEDEXTA [Suspect]
     Dates: start: 20110101

REACTIONS (2)
  - MULTIPLE SCLEROSIS [None]
  - DISEASE PROGRESSION [None]
